FAERS Safety Report 13973984 (Version 2)
Quarter: 2017Q3

REPORT INFORMATION
  Report Type: Spontaneous
  Country: DE (occurrence: DE)
  Receive Date: 20170915
  Receipt Date: 20170921
  Transmission Date: 20171128
  Serious: Yes (Other)
  Sender: FDA-Public Use
  Company Number: DE-PFIZER INC-2017393939

PATIENT
  Age: 77 Year
  Sex: Female

DRUGS (6)
  1. TRANEXAMIC ACID. [Suspect]
     Active Substance: TRANEXAMIC ACID
     Indication: AORTIC VALVE REPLACEMENT
  2. HEPARIN-RATIOPHARM [Suspect]
     Active Substance: HEPARIN SODIUM
     Indication: AORTIC VALVE REPLACEMENT
  3. TRANEXAMIC ACID. [Suspect]
     Active Substance: TRANEXAMIC ACID
     Indication: CORONARY ARTERY BYPASS
     Dosage: 2 G, TRANEXAMIC ACID 500 MG 5 ML
  4. HEPARIN-RATIOPHARM [Suspect]
     Active Substance: HEPARIN SODIUM
     Indication: CORONARY ARTERY BYPASS
     Dosage: DAILY DOSE OF 50000 IU
     Route: 042
  5. NOREPINEPHRINE. [Concomitant]
     Active Substance: NOREPINEPHRINE
     Dosage: 10H POST-OP 1.0 UG/KG/MIN
  6. NOREPINEPHRINE. [Concomitant]
     Active Substance: NOREPINEPHRINE
     Dosage: UP TO 0.35 UG/KG/MIN

REACTIONS (4)
  - Renal failure [Unknown]
  - Drug ineffective [Unknown]
  - Product use in unapproved indication [Unknown]
  - Transaminases increased [Unknown]

NARRATIVE: CASE EVENT DATE: 20170823
